FAERS Safety Report 18628545 (Version 2)
Quarter: 2022Q1

REPORT INFORMATION
  Report Type: Report from Study
  Country: BR (occurrence: BR)
  Receive Date: 20201217
  Receipt Date: 20220211
  Transmission Date: 20220423
  Serious: No
  Sender: FDA-Public Use
  Company Number: BR-TAKEDA-2020TUS047783

PATIENT
  Sex: Male
  Weight: 35 kg

DRUGS (3)
  1. IDURSULFASE [Suspect]
     Active Substance: IDURSULFASE
     Indication: Mucopolysaccharidosis II
     Dosage: 3 DOSAGE FORM, 1/WEEK
     Route: 065
  2. IDURSULFASE [Suspect]
     Active Substance: IDURSULFASE
     Dosage: 3 DOSAGE FORM, 1/WEEK
     Route: 065
     Dates: start: 2017
  3. IDURSULFASE [Suspect]
     Active Substance: IDURSULFASE
     Dosage: 2 MG/ML, 2 VIALS/ WEEK
     Route: 042

REACTIONS (4)
  - Hypoacusis [Unknown]
  - Inappropriate schedule of product administration [Unknown]
  - Product availability issue [Unknown]
  - Product administration error [Unknown]
